FAERS Safety Report 8338356-X (Version None)
Quarter: 2012Q2

REPORT INFORMATION
  Report Type: 
  Country: None (occurrence: None)
  Receive Date: 20120504
  Receipt Date: 20120423
  Transmission Date: 20120825
  Serious: Yes (Other)
  Sender: FDA-Public Use
  Company Number: DE-JNJFOC-20120410419

PATIENT
  Sex: Female

DRUGS (2)
  1. IMODIUM A-D EZ CHEWS [Suspect]
     Indication: PRODUCT USED FOR UNKNOWN INDICATION
     Route: 048
  2. IMODIUM A-D EZ CHEWS [Suspect]
     Route: 048

REACTIONS (1)
  - DRUG ABUSE [None]
